FAERS Safety Report 24031396 (Version 1)
Quarter: 2024Q2

REPORT INFORMATION
  Report Type: Spontaneous
  Country: ES (occurrence: ES)
  Receive Date: 20240629
  Receipt Date: 20240629
  Transmission Date: 20240716
  Serious: Yes (Other)
  Sender: FDA-Public Use
  Company Number: ES-ROCHE-10000001688

PATIENT
  Age: 61 Year
  Sex: Male
  Weight: 90.7 kg

DRUGS (19)
  1. CARBOPLATIN [Suspect]
     Active Substance: CARBOPLATIN
     Indication: Lung cancer metastatic
     Dosage: 683 MILLIGRAM(3 WEEKS )
     Route: 042
     Dates: start: 20210820
  2. ATEZOLIZUMAB [Suspect]
     Active Substance: ATEZOLIZUMAB
     Indication: Lung cancer metastatic
     Dosage: 200 MILLILITER(TOTAL VOLUME PRIOR AE IS 200 ML)
     Route: 042
     Dates: start: 20210820
  3. TIRAGOLUMAB [Suspect]
     Active Substance: TIRAGOLUMAB
     Indication: Lung cancer metastatic
     Dosage: START DATE OF MOST RECENT DOSE OF STUDY DRUG - 27-APR-2022
     Route: 042
     Dates: start: 20210820
  4. ALLANTOIN [Concomitant]
     Active Substance: ALLANTOIN
     Indication: Keratopathy
     Dosage: 1 GTT DROPS, ONCE A DAY
     Dates: start: 20220217
  5. SODIUM HYALURONATE [Concomitant]
     Active Substance: HYALURONATE SODIUM
     Indication: Keratopathy
     Dosage: 1 GTT DROPS
     Dates: start: 20220217
  6. DEXAMETHASONE [Concomitant]
     Active Substance: DEXAMETHASONE
     Indication: Premedication
     Dosage: 8 MILLIGRAM(GIVEN FOR PROPHYLAXIS IS YES)
     Route: 048
     Dates: start: 20210819
  7. DEXAMETHASONE [Concomitant]
     Active Substance: DEXAMETHASONE
     Dosage: 8 MILLIGRAM
     Route: 048
     Dates: start: 20210820
  8. DEXAMETHASONE [Concomitant]
     Active Substance: DEXAMETHASONE
     Dosage: 8 MILLIGRAM, ONCE A DAY
     Route: 048
     Dates: start: 20210821
  9. POLYETHYLENE GLYCOLS [Concomitant]
     Active Substance: POLYETHYLENE GLYCOLS
     Indication: Constipation
     Dosage: UNK(DRUG DOSE FIRST ADMINISTERED IS 1 UNKNOWNGIVEN FOR PROPHYLAXIS IS YES)
     Route: 048
     Dates: start: 20210907
  10. METOCLOPRAMIDE [Concomitant]
     Active Substance: METOCLOPRAMIDE
     Indication: Vomiting
     Dosage: UNK(GIVEN FOR PROPHYLAXIS IS YES)
     Route: 048
     Dates: start: 20210907
  11. PEMETREXED [Concomitant]
     Active Substance: PEMETREXED
     Indication: Lung cancer metastatic
     Dosage: 974 MILLIGRAM
     Route: 042
     Dates: start: 20210820
  12. SPIRONOLACTONE [Concomitant]
     Active Substance: SPIRONOLACTONE
     Indication: Oedema peripheral
     Dosage: 50 MILLIGRAM, ONCE A DAY
     Route: 048
     Dates: start: 20220513, end: 20220517
  13. TIOTROPIUM [Concomitant]
     Active Substance: TIOTROPIUM
     Indication: Dyspnoea
     Dosage: UNK(DRUG DOSE FIRST ADMINISTERED IS 1 INHALATIONGIVEN FOR PROPHYLAXIS IS YES)
     Dates: start: 20210907
  14. FOLIC ACID [Concomitant]
     Active Substance: FOLIC ACID
     Indication: Prophylaxis
     Dosage: 5 MILLIGRAM, ONCE A DAY(GIVEN FOR PROPHYLAXIS IS YES)
     Route: 048
     Dates: start: 20210907
  15. CODEINE [Concomitant]
     Active Substance: CODEINE
     Indication: Cough
     Dosage: DRUG DOSE FIRST ADMINISTERED IS 1 TBSPGIVEN FOR PROPHYLAXIS IS YES
     Route: 048
     Dates: start: 20210811
  16. FUROSEMIDE [Concomitant]
     Active Substance: FUROSEMIDE
     Indication: Oedema peripheral
     Dosage: 40 MILLIGRAM, ONCE A DAY
     Route: 048
     Dates: start: 20220420, end: 20220517
  17. ENALAPRIL [Concomitant]
     Active Substance: ENALAPRIL
     Indication: Hypertension
     Dosage: 10 MILLIGRAM, ONCE A DAY
     Route: 048
     Dates: start: 20210803, end: 20220423
  18. DIAZEPAM [Concomitant]
     Active Substance: DIAZEPAM
     Indication: Prophylaxis
     Dosage: 5 MILLIGRAM, ONCE A DAY(GIVEN FOR PROPHYLAXIS IS YES)
     Route: 048
     Dates: start: 202107, end: 20220819
  19. PEMBROLIZUMAB [Suspect]
     Active Substance: PEMBROLIZUMAB

REACTIONS (1)
  - Immune-mediated adrenal insufficiency [Recovered/Resolved]

NARRATIVE: CASE EVENT DATE: 20220503
